FAERS Safety Report 17459850 (Version 1)
Quarter: 2020Q1

REPORT INFORMATION
  Report Type: Spontaneous
  Country: SI (occurrence: SI)
  Receive Date: 20200226
  Receipt Date: 20200226
  Transmission Date: 20200409
  Serious: Yes (Other)
  Sender: FDA-Public Use
  Company Number: SI-MYLANLABS-2020M1020505

PATIENT
  Age: 9 Year
  Sex: Male

DRUGS (1)
  1. BRUFEN? [Suspect]
     Active Substance: IBUPROFEN
     Indication: HEADACHE
     Dosage: AT HEADACHE

REACTIONS (2)
  - Nightmare [Unknown]
  - Hallucination [Unknown]
